FAERS Safety Report 10059943 (Version 2)
Quarter: 2014Q4

REPORT INFORMATION
  Report Type: Spontaneous
  Country: US (occurrence: US)
  Receive Date: 20140404
  Receipt Date: 20141224
  Transmission Date: 20150528
  Serious: Yes (Death, Hospitalization, Other)
  Sender: FDA-Public Use
  Company Number: US-009507513-1404USA003436

PATIENT
  Sex: Male
  Weight: 97.51 kg

DRUGS (1)
  1. JANUMET [Suspect]
     Active Substance: METFORMIN HYDROCHLORIDE\SITAGLIPTIN PHOSPHATE
     Indication: TYPE 2 DIABETES MELLITUS
     Dosage: 50-500 MG, BID
     Route: 048
     Dates: start: 20080728, end: 20100731

REACTIONS (44)
  - Spinal laminectomy [Unknown]
  - Depression [Unknown]
  - Post laminectomy syndrome [Not Recovered/Not Resolved]
  - Hepatocellular injury [Unknown]
  - Mumps [Unknown]
  - Abdominal distension [Unknown]
  - Back pain [Unknown]
  - Knee arthroplasty [Unknown]
  - Pancreatitis [Unknown]
  - Pancreatitis acute [Unknown]
  - Anxiety [Unknown]
  - Adverse drug reaction [Unknown]
  - Varicella [Unknown]
  - Measles [Unknown]
  - Renal cyst [Unknown]
  - Pneumonia [Unknown]
  - Arthralgia [Unknown]
  - Diarrhoea [Unknown]
  - Abdominal pain upper [Unknown]
  - Pancreatic carcinoma [Unknown]
  - Pancreaticoduodenectomy [Unknown]
  - Bile duct stent insertion [Unknown]
  - Acquired oesophageal web [Unknown]
  - Hydronephrosis [Unknown]
  - Death [Fatal]
  - Bile duct stenosis [Unknown]
  - Tendon operation [Unknown]
  - Oesophageal food impaction [Unknown]
  - Removal of foreign body from oesophagus [Unknown]
  - Campylobacter infection [Unknown]
  - Bundle branch block right [Unknown]
  - Hepatic cirrhosis [Unknown]
  - Impaired gastric emptying [Unknown]
  - Cataract [Unknown]
  - Stress [Unknown]
  - Nephrolithiasis [Unknown]
  - Ligament sprain [Unknown]
  - Large intestine polyp [Unknown]
  - Epigastric discomfort [Unknown]
  - Pancreatitis chronic [Not Recovered/Not Resolved]
  - Pancreatitis acute [Unknown]
  - Fear of death [Unknown]
  - Oesophageal dilation procedure [Unknown]
  - Haemorrhoids [Unknown]

NARRATIVE: CASE EVENT DATE: 20080806
